FAERS Safety Report 21485676 (Version 6)
Quarter: 2023Q2

REPORT INFORMATION
  Report Type: Spontaneous
  Country: US (occurrence: US)
  Receive Date: 20221020
  Receipt Date: 20230526
  Transmission Date: 20230722
  Serious: Yes (Other)
  Sender: FDA-Public Use
  Company Number: US-GLAXOSMITHKLINE-US2022AMR148251

PATIENT

DRUGS (12)
  1. ZEJULA [Suspect]
     Active Substance: NIRAPARIB
     Indication: Ovarian cancer
     Dosage: 200 MG, QD
     Route: 048
     Dates: start: 202112
  2. ZEJULA [Suspect]
     Active Substance: NIRAPARIB
     Dosage: 200 MG, QD
     Route: 048
  3. ZEJULA [Suspect]
     Active Substance: NIRAPARIB
     Dosage: 200 MG, QD
     Route: 048
     Dates: end: 20230424
  4. VARICELLA-ZOSTER VACCINE NOS [Suspect]
     Active Substance: VARICELLA-ZOSTER VACCINE
     Indication: Prophylaxis
  5. MODERNA COVID-19 VACCINE [Suspect]
     Active Substance: ELASOMERAN
     Indication: Prophylaxis
     Dosage: UNK
  6. MODERNA COVID-19 VACCINE [Suspect]
     Active Substance: ELASOMERAN
     Indication: Prophylaxis
     Dosage: UNK, (SECOND DOSE)
     Dates: start: 20220702
  7. ONDANSETRON [Concomitant]
     Active Substance: ONDANSETRON
     Indication: Product used for unknown indication
     Dosage: UNK
  8. AZELASTINE [Concomitant]
     Active Substance: AZELASTINE
     Indication: Product used for unknown indication
     Dosage: UNK
  9. MELATONIN [Concomitant]
     Active Substance: MELATONIN
     Indication: Product used for unknown indication
     Dosage: UNK
  10. MIRALAX [Concomitant]
     Active Substance: POLYETHYLENE GLYCOL 3350
     Indication: Product used for unknown indication
     Dosage: UNK
  11. PROCHLORPERAZINE MALEATE [Concomitant]
     Active Substance: PROCHLORPERAZINE MALEATE
     Indication: Product used for unknown indication
     Dosage: UNK
  12. PROCHLORPERAZINE [Concomitant]
     Active Substance: PROCHLORPERAZINE
     Indication: Product used for unknown indication
     Dosage: UNK

REACTIONS (22)
  - Pneumonia [Recovered/Resolved]
  - Thrombocytopenia [Recovering/Resolving]
  - Immunodeficiency [Unknown]
  - Influenza like illness [Recovered/Resolved]
  - Nausea [Recovered/Resolved]
  - Vomiting [Recovered/Resolved]
  - Pyrexia [Recovered/Resolved]
  - Chills [Recovered/Resolved]
  - Headache [Recovered/Resolved]
  - Myalgia [Recovered/Resolved]
  - Laboratory test abnormal [Recovered/Resolved]
  - Platelet count decreased [Not Recovered/Not Resolved]
  - White blood cell count decreased [Recovered/Resolved]
  - Neutrophil count decreased [Recovered/Resolved]
  - Hepatic enzyme increased [Not Recovered/Not Resolved]
  - Heart rate increased [Recovered/Resolved]
  - Blood pressure diastolic increased [Recovered/Resolved]
  - Adverse drug reaction [Recovered/Resolved]
  - Blood pressure increased [Recovering/Resolving]
  - Palpitations [Recovering/Resolving]
  - Full blood count decreased [Unknown]
  - Incisional hernia [Unknown]

NARRATIVE: CASE EVENT DATE: 20220101
